FAERS Safety Report 4660148-3 (Version None)
Quarter: 2005Q2

REPORT INFORMATION
  Report Type: 
  Country: None (occurrence: None)
  Receive Date: 20050419
  Receipt Date: 20040920
  Transmission Date: 20051028
  Serious: Yes (Other)
  Sender: FDA-Public Use
  Company Number: 20041000470

PATIENT

DRUGS (1)
  1. HEPARIN [Suspect]

REACTIONS (1)
  - HEPARIN-INDUCED THROMBOCYTOPENIA [None]
